FAERS Safety Report 13147156 (Version 2)
Quarter: 2017Q1

REPORT INFORMATION
  Report Type: Spontaneous
  Country: US (occurrence: US)
  Receive Date: 20170125
  Receipt Date: 20170131
  Transmission Date: 20170428
  Serious: Yes (Hospitalization)
  Sender: FDA-Public Use
  Company Number: US-009507513-1701USA011386

PATIENT
  Age: 62 Year

DRUGS (6)
  1. METOPROLOL TARTRATE. [Concomitant]
     Active Substance: METOPROLOL TARTRATE
  2. ZOCOR [Concomitant]
     Active Substance: SIMVASTATIN
     Route: 048
  3. PROTONIX [Concomitant]
     Active Substance: PANTOPRAZOLE SODIUM
  4. NITROPRESS [Concomitant]
     Active Substance: SODIUM NITROPRUSSIDE
  5. ZEPATIER [Suspect]
     Active Substance: ELBASVIR\GRAZOPREVIR
     Indication: HEPATITIS C
     Dosage: STRENGHT:50-100MG; 1 TABLET EVERY DAY
     Route: 048
     Dates: start: 201612
  6. GABAPENTIN. [Concomitant]
     Active Substance: GABAPENTIN

REACTIONS (3)
  - Post procedural infection [Unknown]
  - Ankle arthroplasty [Unknown]
  - Ankle operation [Unknown]

NARRATIVE: CASE EVENT DATE: 201701
